FAERS Safety Report 7532791-5 (Version None)
Quarter: 2011Q2

REPORT INFORMATION
  Report Type: 
  Country: None (occurrence: None)
  Receive Date: 20110608
  Receipt Date: 20110531
  Transmission Date: 20111010
  Serious: Yes (Other)
  Sender: FDA-Public Use
  Company Number: B0724016A

PATIENT

DRUGS (4)
  1. PAXIL [Suspect]
     Route: 048
     Dates: start: 20110423, end: 20110506
  2. PAXIL [Suspect]
     Dosage: 1IUAX PER DAY
     Route: 048
     Dates: start: 20110409, end: 20110422
  3. PAXIL [Suspect]
     Route: 048
     Dates: start: 20110507, end: 20110520
  4. PAXIL [Suspect]
     Route: 048
     Dates: start: 20110521

REACTIONS (2)
  - PERSONALITY DISORDER [None]
  - AGGRESSION [None]
